FAERS Safety Report 7709661-2 (Version None)
Quarter: 2011Q3

REPORT INFORMATION
  Report Type: 
  Country: None (occurrence: None)
  Receive Date: 20110825
  Receipt Date: 20110818
  Transmission Date: 20111222
  Serious: Yes (Other)
  Sender: FDA-Public Use
  Company Number: US-GLAXOSMITHKLINE-A0941549A

PATIENT
  Age: 35 Year
  Sex: Female

DRUGS (5)
  1. LUVOX [Concomitant]
  2. XANAX [Concomitant]
  3. LAMICTAL [Suspect]
     Indication: BIPOLAR DISORDER
     Route: 048
     Dates: start: 20110501, end: 20110601
  4. LAMOTRIGINE [Suspect]
     Indication: BIPOLAR DISORDER
     Dosage: 1TAB PER DAY
     Dates: start: 20110601, end: 20110808
  5. KLONOPIN [Concomitant]

REACTIONS (3)
  - DRUG ADMINISTRATION ERROR [None]
  - HAEMATOCHEZIA [None]
  - DIARRHOEA [None]
